FAERS Safety Report 23398241 (Version 2)
Quarter: 2024Q1

REPORT INFORMATION
  Report Type: Spontaneous
  Country: US (occurrence: US)
  Receive Date: 20240112
  Receipt Date: 20240118
  Transmission Date: 20240410
  Serious: No
  Sender: FDA-Public Use
  Company Number: US-PFIZER INC-202400011790

PATIENT
  Age: 34 Year
  Sex: Female
  Weight: 65.77 kg

DRUGS (1)
  1. EUCRISA [Suspect]
     Active Substance: CRISABOROLE
     Indication: Dermatitis contact
     Dosage: UNK
     Dates: start: 20240105, end: 20240106

REACTIONS (4)
  - Drug hypersensitivity [Recovering/Resolving]
  - Rash [Recovered/Resolved]
  - Eczema [Recovering/Resolving]
  - Sensitive skin [Recovering/Resolving]

NARRATIVE: CASE EVENT DATE: 20240105
